FAERS Safety Report 12446456 (Version 1)
Quarter: 2016Q2

REPORT INFORMATION
  Report Type: Spontaneous
  Country: ES (occurrence: ES)
  Receive Date: 20160608
  Receipt Date: 20160608
  Transmission Date: 20160815
  Serious: Yes (Other)
  Sender: FDA-Public Use
  Company Number: ES-AMGEN-ESPSP2015083941

PATIENT
  Age: 32 Year
  Sex: Female

DRUGS (5)
  1. ENBREL [Suspect]
     Active Substance: ETANERCEPT
     Indication: PSORIASIS
     Dosage: 50 MG, 2X/WEEK
     Route: 058
     Dates: start: 20150721
  2. CECILIANA [Concomitant]
     Indication: CONTRACEPTION
  3. CECILIANA [Concomitant]
     Indication: OVARIAN CYST
     Dosage: 1 TABLET, 1X/DAY
  4. ENBREL [Suspect]
     Active Substance: ETANERCEPT
     Dosage: 50 MG, WEEKLY (ON TUESDAYS)
     Route: 058
     Dates: start: 20150908
  5. ENBREL [Suspect]
     Active Substance: ETANERCEPT
     Dosage: 50 MG, WEEKLY
     Route: 058
     Dates: end: 201601

REACTIONS (15)
  - Wound [Not Recovered/Not Resolved]
  - Condition aggravated [Not Recovered/Not Resolved]
  - Injection site swelling [Recovered/Resolved]
  - Crohn^s disease [Not Recovered/Not Resolved]
  - Pruritus [Not Recovered/Not Resolved]
  - Injection site erythema [Recovered/Resolved]
  - Injection site pain [Recovered/Resolved]
  - Disease recurrence [Not Recovered/Not Resolved]
  - Psoriasis [Not Recovered/Not Resolved]
  - Injection site pruritus [Recovered/Resolved]
  - Ovarian cyst [Not Recovered/Not Resolved]
  - Abdominal pain [Not Recovered/Not Resolved]
  - Scratch [Not Recovered/Not Resolved]
  - Injection site warmth [Recovered/Resolved]
  - Pruritus generalised [Unknown]

NARRATIVE: CASE EVENT DATE: 2015
